FAERS Safety Report 19569145 (Version 1)
Quarter: 2021Q3

REPORT INFORMATION
  Report Type: Spontaneous
  Country: US (occurrence: US)
  Receive Date: 20210716
  Receipt Date: 20210716
  Transmission Date: 20211014
  Serious: Yes (Other)
  Sender: FDA-Public Use
  Company Number: US-HIKMA PHARMACEUTICALS USA INC.-US-H14001-21-03254

PATIENT
  Age: 55 Year
  Sex: Male

DRUGS (7)
  1. KETOCONAZOLE. [Concomitant]
     Active Substance: KETOCONAZOLE
     Indication: METABOLIC DISORDER
  2. ETOPOSIDE. [Suspect]
     Active Substance: ETOPOSIDE
     Indication: CHEMOTHERAPY
     Dosage: UNKNOWN
     Route: 065
  3. KETOCONAZOLE. [Concomitant]
     Active Substance: KETOCONAZOLE
     Indication: DELIRIUM
     Dosage: UNKNOWN
     Route: 065
  4. ETOMIDATE. [Concomitant]
     Active Substance: ETOMIDATE
     Indication: DELIRIUM
     Dosage: UNKNOWN
     Route: 041
  5. ETOMIDATE. [Concomitant]
     Active Substance: ETOMIDATE
     Indication: METABOLIC DISORDER
  6. MITOTANE [Concomitant]
     Active Substance: MITOTANE
     Indication: CORTISOL INCREASED
     Dosage: UNKNOWN
     Route: 065
  7. CISPLATIN. [Suspect]
     Active Substance: CISPLATIN
     Indication: CHEMOTHERAPY
     Dosage: UNKNOWN
     Route: 065

REACTIONS (3)
  - Diverticulitis [Unknown]
  - Multiple organ dysfunction syndrome [Unknown]
  - Septic shock [Unknown]
